FAERS Safety Report 11424561 (Version 3)
Quarter: 2015Q4

REPORT INFORMATION
  Report Type: Report from Study
  Country: BE (occurrence: BE)
  Receive Date: 20150827
  Receipt Date: 20151019
  Transmission Date: 20160304
  Serious: Yes (Other)
  Sender: FDA-Public Use
  Company Number: BE-TAKEDA-2015MPI004014

PATIENT

DRUGS (2)
  1. VELCADE [Suspect]
     Active Substance: BORTEZOMIB
     Indication: PRODUCT USED FOR UNKNOWN INDICATION
     Dosage: 2.21 MG, UNK
     Route: 058
     Dates: start: 20150528
  2. VELCADE [Suspect]
     Active Substance: BORTEZOMIB
     Dosage: 2.21 MG, UNK
     Route: 058
     Dates: start: 20150820

REACTIONS (2)
  - Fatigue [Unknown]
  - Haemorrhage [Recovered/Resolved]
